FAERS Safety Report 18146618 (Version 2)
Quarter: 2020Q3

REPORT INFORMATION
  Report Type: Spontaneous
  Country: US (occurrence: US)
  Receive Date: 20200813
  Receipt Date: 20200827
  Transmission Date: 20201103
  Serious: Yes (Hospitalization, Congenital Anomaly, Other)
  Sender: FDA-Public Use
  Company Number: US-TEVA-2020-US-1812724

PATIENT
  Sex: Male

DRUGS (1)
  1. OLMESARTAN [Suspect]
     Active Substance: OLMESARTAN
     Indication: DRUG THERAPY
     Route: 064

REACTIONS (9)
  - Angiopathy [Unknown]
  - Vena cava thrombosis [Recovered/Resolved]
  - Foetal exposure during pregnancy [Recovering/Resolving]
  - Premature baby [Unknown]
  - Chronic kidney disease [Recovering/Resolving]
  - End stage renal disease [Recovering/Resolving]
  - Pelvic venous thrombosis [Recovered/Resolved]
  - Foetal disorder [Unknown]
  - Congenital anomaly [Unknown]
